FAERS Safety Report 7608784-6 (Version None)
Quarter: 2011Q3

REPORT INFORMATION
  Report Type: 
  Country: None (occurrence: None)
  Receive Date: 20110714
  Receipt Date: 20110708
  Transmission Date: 20111222
  Serious: Yes (Death)
  Sender: FDA-Public Use
  Company Number: IN-PFIZER INC-2011155573

PATIENT
  Sex: Male

DRUGS (6)
  1. ZENFLOX OZ [Concomitant]
     Dosage: 2 TABLETS DAILY FOR 3 DAYS
  2. SUTENT [Suspect]
     Dosage: 25 MG, 1X/DAY
     Route: 048
  3. SUTENT [Suspect]
     Indication: METASTATIC RENAL CELL CARCINOMA
     Dosage: 37.5 MG, 1X/DAY
     Route: 048
  4. PACID [Concomitant]
     Dosage: UNK
  5. MEFTAL-SPAS [Concomitant]
     Dosage: 2 TABLETS DAILY FOR 5 DAYS AND THEN SOS
  6. ATARAX [Concomitant]
     Dosage: 25 MG, 1X/DAY

REACTIONS (1)
  - DEATH [None]
